FAERS Safety Report 21370692 (Version 1)
Quarter: 2022Q3

REPORT INFORMATION
  Report Type: Report from Study
  Country: US (occurrence: US)
  Receive Date: 20220923
  Receipt Date: 20220923
  Transmission Date: 20221026
  Serious: Yes (Other)
  Sender: FDA-Public Use
  Company Number: US-BAYER-2022A110672

PATIENT
  Age: 55 Year
  Sex: Male

DRUGS (3)
  1. STIVARGA [Suspect]
     Active Substance: REGORAFENIB
     Indication: Hepatic cancer
     Dosage: 40 MG, QD
     Route: 048
     Dates: start: 20220730, end: 20220801
  2. STIVARGA [Suspect]
     Active Substance: REGORAFENIB
     Indication: Hepatic cancer
     Dosage: 40 MG, QD
     Route: 048
     Dates: start: 20220802
  3. STIVARGA [Suspect]
     Active Substance: REGORAFENIB
     Indication: Hepatic cancer
     Dosage: 160 MG, QD
     Dates: end: 20220904

REACTIONS (8)
  - Laboratory test abnormal [None]
  - Abdominal pain upper [Not Recovered/Not Resolved]
  - Off label use [None]
  - Hepatic pain [Recovered/Resolved]
  - Product dose omission issue [Recovered/Resolved]
  - Blister [Not Recovered/Not Resolved]
  - Drug ineffective [None]
  - Product dose omission issue [None]

NARRATIVE: CASE EVENT DATE: 20220730
